FAERS Safety Report 8192459 (Version 2)
Quarter: 2013Q4

REPORT INFORMATION
  Report Type: Spontaneous
  Country: US (occurrence: US)
  Receive Date: 20111020
  Receipt Date: 20131008
  Transmission Date: 20140711
  Serious: Yes (Other)
  Sender: FDA-Public Use
  Company Number: US-ROCHE-778861

PATIENT
  Age: 16 Year
  Sex: Male
  Weight: 71.28 kg

DRUGS (3)
  1. ACCUTANE [Suspect]
     Indication: ACNE
     Dosage: ALTERNATE 40 MG ONCE A DAY AND 40 MG TWICE A DAY.
     Route: 048
  2. ACCUTANE [Suspect]
     Dosage: ALTERNATE 40 MG ONCE A DAY AND 80 MG TWICE A DAY.
     Route: 048
  3. ACCUTANE [Suspect]
     Route: 048
     Dates: start: 20000127, end: 20000421

REACTIONS (9)
  - Colitis ulcerative [Not Recovered/Not Resolved]
  - Deep vein thrombosis [Unknown]
  - Pulmonary embolism [Unknown]
  - Intestinal obstruction [Unknown]
  - Depression [Unknown]
  - Inflammatory bowel disease [Unknown]
  - Dry skin [Recovered/Resolved]
  - Dry eye [Recovered/Resolved]
  - Eczema [Recovered/Resolved]
